FAERS Safety Report 8384858-X (Version None)
Quarter: 2012Q2

REPORT INFORMATION
  Report Type: 
  Country: None (occurrence: None)
  Receive Date: 20120524
  Receipt Date: 20120521
  Transmission Date: 20120825
  Serious: Yes (Other)
  Sender: FDA-Public Use
  Company Number: US-PFIZER INC-2012068062

PATIENT
  Sex: Female

DRUGS (1)
  1. LIPITOR [Suspect]
     Dosage: 10 MG, 2X/DAY
     Route: 048

REACTIONS (5)
  - FALL [None]
  - SPEECH DISORDER [None]
  - RIB FRACTURE [None]
  - TRAUMATIC LUNG INJURY [None]
  - HEAD INJURY [None]
